FAERS Safety Report 9114838 (Version 1)
Quarter: 2013Q1

REPORT INFORMATION
  Report Type: Spontaneous
  Country: US (occurrence: None)
  Receive Date: 20130128
  Receipt Date: 20130128
  Transmission Date: 20140127
  Serious: Yes (Other)
  Sender: FDA-Public Use
  Company Number: 2012-19978

PATIENT
  Sex: Female

DRUGS (2)
  1. MORPHINE SULFATE (UNKNOWN) (MORPHINE SULFATE) UNK, UNKUNK [Suspect]
     Indication: COMPLEX REGIONAL PAIN SYNDROME
     Dosage: 1 MG/DAY, INCREASED TO 10 MG/DAY, PEAK DOSE 15 MG/DAY, INTRATHECAL
     Route: 037
     Dates: start: 200003
  2. CLONIDINE [Suspect]
     Indication: COMPLEX REGIONAL PAIN SYNDROME
     Dosage: 150 MICROGRAMS/DAY, 950 MICROGRAMS/DAY, MAXIMUM 1114 MICROGRAMS/DAY

REACTIONS (7)
  - Injection site granuloma [None]
  - Spinal cord compression [None]
  - Muscular weakness [None]
  - Pain in extremity [None]
  - Micturition urgency [None]
  - Urinary incontinence [None]
  - Drug ineffective [None]
